FAERS Safety Report 8586580 (Version 8)
Quarter: 2018Q4

REPORT INFORMATION
  Report Type: Report from Study
  Country: CH (occurrence: CH)
  Receive Date: 20120530
  Receipt Date: 20181015
  Transmission Date: 20190205
  Serious: Yes (Death, Hospitalization, Other)
  Sender: FDA-Public Use
  Company Number: CH-ROCHE-1070206

PATIENT

DRUGS (10)
  1. METHOTREXATE. [Concomitant]
     Active Substance: METHOTREXATE
  2. AZATHIOPRINE. [Concomitant]
     Active Substance: AZATHIOPRINE
  3. RITUXIMAB. [Suspect]
     Active Substance: RITUXIMAB
     Indication: SYSTEMIC SCLERODERMA
     Route: 042
  4. MYCOPHENOLATE MOFETIL. [Concomitant]
     Active Substance: MYCOPHENOLATE MOFETIL
  5. CYCLOPHOSPHAMIDE. [Concomitant]
     Active Substance: CYCLOPHOSPHAMIDE
  6. TACROLIMUS. [Concomitant]
     Active Substance: TACROLIMUS
  7. LEFLUNOMIDE. [Concomitant]
     Active Substance: LEFLUNOMIDE
  8. COLCHICINE. [Concomitant]
     Active Substance: COLCHICINE
  9. PREDNISONE. [Concomitant]
     Active Substance: PREDNISONE
  10. SULFASALAZINE. [Concomitant]
     Active Substance: SULFASALAZINE

REACTIONS (14)
  - Intentional product use issue [Fatal]
  - Pulmonary fibrosis [Unknown]
  - Nausea [Unknown]
  - Off label use [Fatal]
  - Chills [Unknown]
  - Cardiac disorder [Unknown]
  - Hypersensitivity [Unknown]
  - Lung infection [Unknown]
  - Renal disorder [Unknown]
  - Pneumonia [Fatal]
  - Infection [Unknown]
  - Skin infection [Unknown]
  - Serum sickness [Unknown]
  - Fatigue [Unknown]
